FAERS Safety Report 7432312-1 (Version None)
Quarter: 2011Q2

REPORT INFORMATION
  Report Type: 
  Country: None (occurrence: None)
  Receive Date: 20110422
  Receipt Date: 20110328
  Transmission Date: 20111010
  Serious: Yes (Hospitalization)
  Sender: FDA-Public Use
  Company Number: FR-PFIZER INC-FR-WYE-H15447110

PATIENT
  Sex: Male

DRUGS (7)
  1. ALLOPURINOL [Suspect]
     Dosage: 100 MG, 1 DF. FREQUENCY UNSPECIFIED
     Route: 048
  2. WARFARIN [Suspect]
     Dosage: 2 MG FREQUENCY UNSPECIFIED
     Route: 048
     Dates: end: 20100208
  3. ZOLOFT [Suspect]
     Dosage: 50 MG 1 DF, FREQUENCY UNSPECIFIED
     Route: 048
     Dates: start: 20100202
  4. TEMESTA [Concomitant]
     Route: 065
  5. INIPOMP [Suspect]
     Dosage: 40 MG, 1X/DAY
     Route: 048
     Dates: start: 20100202
  6. KERLONE [Concomitant]
     Route: 065
  7. FORLAX [Concomitant]
     Route: 065

REACTIONS (2)
  - VARICES OESOPHAGEAL [None]
  - GASTROINTESTINAL HAEMORRHAGE [None]
